FAERS Safety Report 6687264-9 (Version None)
Quarter: 2010Q2

REPORT INFORMATION
  Report Type: 
  Country: None (occurrence: None)
  Receive Date: 20100415
  Receipt Date: 20100330
  Transmission Date: 20101027
  Serious: Yes (Other)
  Sender: FDA-Public Use
  Company Number: US-1181416

PATIENT
  Sex: Male
  Weight: 165 kg

DRUGS (1)
  1. CIPRODEX [Suspect]
     Dosage: (BID AD X 7 DAYS AURICULAR (OTIC)
     Route: 001
     Dates: start: 20090927

REACTIONS (3)
  - AURICULAR SWELLING [None]
  - EAR HAEMORRHAGE [None]
  - HYPOACUSIS [None]
